APPROVED DRUG PRODUCT: DOXYCYCLINE HYCLATE
Active Ingredient: DOXYCYCLINE HYCLATE
Strength: EQ 50MG BASE
Dosage Form/Route: CAPSULE;ORAL
Application: A062031 | Product #002 | TE Code: AB
Applicant: ACTAVIS LABORATORIES FL INC
Approved: Oct 13, 1982 | RLD: No | RS: No | Type: RX